FAERS Safety Report 18564246 (Version 1)
Quarter: 2020Q4

REPORT INFORMATION
  Report Type: Spontaneous
  Country: US (occurrence: US)
  Receive Date: 20201130
  Receipt Date: 20201130
  Transmission Date: 20210114
  Serious: Yes (Disabling)
  Sender: FDA-Public Use
  Company Number: None

PATIENT
  Age: 30 Year
  Sex: Female
  Weight: 13.5 kg

DRUGS (2)
  1. GABAPENTIN. [Suspect]
     Active Substance: GABAPENTIN
  2. ZIPRASIDONE. [Suspect]
     Active Substance: ZIPRASIDONE

REACTIONS (8)
  - Nausea [None]
  - Paranoia [None]
  - Anxiety [None]
  - Hypophagia [None]
  - Hallucination, auditory [None]
  - Eye pain [None]
  - Product appearance confusion [None]
  - Wrong product administered [None]

NARRATIVE: CASE EVENT DATE: 20200420
